FAERS Safety Report 5415200-1 (Version None)
Quarter: 2007Q3

REPORT INFORMATION
  Report Type: 
  Country: None (occurrence: None)
  Receive Date: 20070814
  Receipt Date: 20070814
  Transmission Date: 20080115
  Serious: Yes (Other)
  Sender: FDA-Public Use
  Company Number: None

PATIENT
  Age: 61 Year
  Sex: Female
  Weight: 54.4316 kg

DRUGS (1)
  1. NITROFURANTOIN [Suspect]
     Indication: CYSTITIS
     Dosage: 2 TIMES A DAY  EVERY 2 HOURS  PO
     Route: 048
     Dates: start: 20070808, end: 20070810

REACTIONS (3)
  - LIP SWELLING [None]
  - OEDEMA PERIPHERAL [None]
  - PRURITUS [None]
